FAERS Safety Report 7596523-7 (Version None)
Quarter: 2011Q3

REPORT INFORMATION
  Report Type: 
  Country: None (occurrence: None)
  Receive Date: 20110708
  Receipt Date: 20110628
  Transmission Date: 20111222
  Serious: No
  Sender: FDA-Public Use
  Company Number: US-BIOGENIDEC-2011BI023696

PATIENT
  Sex: Female

DRUGS (1)
  1. AVONEX [Suspect]
     Indication: MULTIPLE SCLEROSIS
     Route: 030
     Dates: start: 20030701

REACTIONS (8)
  - DYSPNOEA [None]
  - STRESS [None]
  - VISION BLURRED [None]
  - MUSCLE SPASMS [None]
  - ASTHENIA [None]
  - ROAD TRAFFIC ACCIDENT [None]
  - INSOMNIA [None]
  - MEMORY IMPAIRMENT [None]
